FAERS Safety Report 4600295-5 (Version None)
Quarter: 2005Q1

REPORT INFORMATION
  Report Type: 
  Country: None (occurrence: None)
  Receive Date: 20050303
  Receipt Date: 20050209
  Transmission Date: 20050727
  Serious: Yes (Hospitalization)
  Sender: FDA-Public Use
  Company Number: JP_050205868

PATIENT
  Age: 72 Year
  Sex: Female
  Weight: 47 kg

DRUGS (6)
  1. ZYPREXA [Suspect]
     Indication: DELUSIONAL DISORDER, PERSECUTORY TYPE
     Dosage: 10 MG DAY
     Route: 048
     Dates: start: 20040309, end: 20040313
  2. PAXIL [Concomitant]
  3. AMLODIPINE BESYLATE [Concomitant]
  4. PANTOSIN (PANTETHINE) [Concomitant]
  5. MAGLAX (MAGNESIUM OXIDE) [Concomitant]
  6. DEPAS (ETIZOLAM) [Concomitant]

REACTIONS (1)
  - SEROTONIN SYNDROME [None]
